FAERS Safety Report 7153506-9 (Version None)
Quarter: 2010Q4

REPORT INFORMATION
  Report Type: 
  Country: None (occurrence: None)
  Receive Date: 20101213
  Receipt Date: 20101206
  Transmission Date: 20110411
  Serious: Yes (Other)
  Sender: FDA-Public Use
  Company Number: B0688261A

PATIENT
  Age: 31 Year
  Sex: Male

DRUGS (5)
  1. ZOVIRAX [Suspect]
     Route: 042
  2. CEFAZOLIN SODIUM [Concomitant]
     Dosage: 3G PER DAY
     Route: 042
  3. IMIPENEM AND CILASTATIN SODIUM [Concomitant]
     Dosage: 1.5G PER DAY
     Route: 042
  4. CLINDAMYCIN [Concomitant]
     Dosage: 1200MG PER DAY
     Route: 042
  5. GLOBULIN [Concomitant]
     Route: 042

REACTIONS (1)
  - HALLUCINATION [None]
